FAERS Safety Report 22244378 (Version 2)
Quarter: 2023Q2

REPORT INFORMATION
  Report Type: Other
  Country: CA (occurrence: CA)
  Receive Date: 20230424
  Receipt Date: 20230517
  Transmission Date: 20230722
  Serious: Yes (Death, Other)
  Sender: FDA-Public Use
  Company Number: CA-CELLTRION INC.-2023CA008283

PATIENT

DRUGS (3)
  1. RITUXIMAB [Suspect]
     Active Substance: RITUXIMAB
     Indication: Neoplasm malignant
     Dosage: 1000 MG
     Route: 042
  2. RITUXIMAB [Suspect]
     Active Substance: RITUXIMAB
     Indication: Non-Hodgkin^s lymphoma
     Dosage: 1 EVERY 3 WEEKS
     Route: 042
  3. CYCLOPHOSPHAMIDE;DOXORUBICIN HYDROCHLORIDE;PREDNISONE;RITUXIMAB;VINCRI [Concomitant]
     Indication: Product used for unknown indication
     Route: 065

REACTIONS (3)
  - Death [Fatal]
  - Non-Hodgkin^s lymphoma [Fatal]
  - Malignant neoplasm progression [Fatal]
